FAERS Safety Report 10530834 (Version 1)
Quarter: 2014Q4

REPORT INFORMATION
  Report Type: Spontaneous
  Country: FR (occurrence: FR)
  Receive Date: 20141021
  Receipt Date: 20141021
  Transmission Date: 20150528
  Serious: Yes (Death)
  Sender: FDA-Public Use
  Company Number: FR-009507513-1410FRA009930

PATIENT
  Age: 59 Year
  Sex: Male

DRUGS (5)
  1. ORGARAN [Suspect]
     Active Substance: DANAPAROID SODIUM
     Dosage: DAILY DOSE: 7200 IU (300 IU, 1 IN 1 HOUR)
     Route: 042
     Dates: start: 20140912, end: 20140921
  2. ORGARAN [Suspect]
     Active Substance: DANAPAROID SODIUM
     Dosage: DAILY DOSE: 2500 IU (2500 IU, 1 IN 1 TOTAL)
     Route: 040
     Dates: start: 20140912, end: 20140912
  3. ORGARAN [Suspect]
     Active Substance: DANAPAROID SODIUM
     Indication: HEPARIN-INDUCED THROMBOCYTOPENIA
     Dosage: DAILY DOSE: 2400 IU (100 IU, 1 IN 1 HOUR)
     Route: 042
     Dates: start: 20140911, end: 20140921
  4. KARDEGIC [Concomitant]
     Active Substance: ASPIRIN LYSINE
     Indication: PRODUCT USED FOR UNKNOWN INDICATION
     Dosage: UNK
     Route: 048
     Dates: start: 20140912
  5. PLAVIX [Concomitant]
     Active Substance: CLOPIDOGREL BISULFATE
     Indication: PRODUCT USED FOR UNKNOWN INDICATION
     Dosage: UNK
     Route: 048
     Dates: start: 20140911

REACTIONS (2)
  - Haemorrhagic anaemia [Fatal]
  - Pericardial haemorrhage [Fatal]

NARRATIVE: CASE EVENT DATE: 20140921
